FAERS Safety Report 18756069 (Version 1)
Quarter: 2021Q1

REPORT INFORMATION
  Report Type: Spontaneous
  Country: US (occurrence: US)
  Receive Date: 20210119
  Receipt Date: 20210119
  Transmission Date: 20210419
  Serious: Yes (Hospitalization)
  Sender: FDA-Public Use
  Company Number: US-MYLANLABS-2021M1002170

PATIENT
  Age: 63 Year
  Sex: Female

DRUGS (4)
  1. MYCOPHENOLATE [Concomitant]
     Active Substance: MYCOPHENOLIC ACID
     Indication: IMMUNOSUPPRESSANT DRUG THERAPY
     Dosage: MAINTENANCE THERAPY
     Route: 065
  2. TACROLIMUS. [Concomitant]
     Active Substance: TACROLIMUS
     Indication: IMMUNOSUPPRESSANT DRUG THERAPY
     Dosage: MAINTENANCE THERAPY
     Route: 065
  3. PREDNISONE. [Concomitant]
     Active Substance: PREDNISONE
     Indication: IMMUNOSUPPRESSANT DRUG THERAPY
     Dosage: MAINTENANCE THERAPY
     Route: 065
  4. DESMOPRESSIN [Suspect]
     Active Substance: DESMOPRESSIN
     Indication: HAEMOSTASIS
     Dosage: 0.3 MICROGRAM/KILOGRAM
     Route: 042

REACTIONS (3)
  - Hyponatraemia [Recovering/Resolving]
  - Encephalopathy [Recovered/Resolved]
  - Off label use [Unknown]
